FAERS Safety Report 23365405 (Version 1)
Quarter: 2024Q1

REPORT INFORMATION
  Report Type: Spontaneous
  Country: US (occurrence: US)
  Receive Date: 20240104
  Receipt Date: 20240104
  Transmission Date: 20240409
  Serious: No
  Sender: FDA-Public Use
  Company Number: US-BAUSCHBL-2023BNL013832

PATIENT
  Age: 70 Year
  Sex: Female
  Weight: 55.33 kg

DRUGS (1)
  1. FLURBIPROFEN SODIUM [Suspect]
     Active Substance: FLURBIPROFEN SODIUM
     Indication: Uveitis
     Route: 047
     Dates: start: 2023

REACTIONS (4)
  - Weight decreased [Not Recovered/Not Resolved]
  - Mouth swelling [Not Recovered/Not Resolved]
  - Visual impairment [Not Recovered/Not Resolved]
  - Eye inflammation [Not Recovered/Not Resolved]

NARRATIVE: CASE EVENT DATE: 20230101
